FAERS Safety Report 14751799 (Version 2)
Quarter: 2018Q2

REPORT INFORMATION
  Report Type: Spontaneous
  Country: JP (occurrence: JP)
  Receive Date: 20180412
  Receipt Date: 20180507
  Transmission Date: 20180711
  Serious: Yes (Death, Hospitalization)
  Sender: FDA-Public Use
  Company Number: JP-BAYER-2018-071097

PATIENT
  Age: 95 Year
  Sex: Male
  Weight: 48 kg

DRUGS (12)
  1. UBIDECARENONE [Concomitant]
     Active Substance: UBIDECARENONE
     Dosage: DAILY DOSE 30 MG
     Route: 048
  2. ALOSENN [Concomitant]
     Active Substance: SENNA LEAF
     Dosage: DAILY DOSE .75 G
     Route: 048
  3. FERROMIA [Concomitant]
     Active Substance: SODIUM FERROUS CITRATE
     Dosage: DAILY DOSE 100 MG
     Route: 048
  4. NATRIX [Concomitant]
     Active Substance: INDAPAMIDE
     Dosage: DAILY DOSE 1 MG
     Route: 048
  5. VALSARTAN. [Concomitant]
     Active Substance: VALSARTAN
     Dosage: DAILY DOSE 1 DF
     Route: 048
  6. MAGMITT [Concomitant]
     Active Substance: MAGNESIUM OXIDE
     Dosage: DAILY DOSE 990 MG
     Route: 048
  7. URIEF [Concomitant]
     Active Substance: SILODOSIN
     Dosage: DAILY DOSE 8 MG
     Route: 048
  8. MUCODYNE [Concomitant]
     Active Substance: CARBOCYSTEINE
     Dosage: DAILY DOSE 750 MG
     Route: 048
  9. BAYASPIRIN 100 MG [Suspect]
     Active Substance: ASPIRIN
     Indication: ANGINA PECTORIS
     Dosage: DAILY DOSE 100 MG
     Route: 048
     Dates: end: 20180406
  10. NICORANDIL [Concomitant]
     Active Substance: NICORANDIL
     Dosage: DAILY DOSE 15 MG
     Route: 048
  11. NICARDIPINE [Concomitant]
     Active Substance: NICARDIPINE
     Dosage: DAILY DOSE 80 MG
     Route: 048
  12. VILDAGLIPTIN [Concomitant]
     Active Substance: VILDAGLIPTIN
     Dosage: DAILY DOSE 50 MG
     Route: 048

REACTIONS (5)
  - Upper gastrointestinal haemorrhage [Recovering/Resolving]
  - Gastric haemorrhage [Recovering/Resolving]
  - Lung neoplasm malignant [Fatal]
  - Haematemesis [Recovering/Resolving]
  - Pleural effusion [None]

NARRATIVE: CASE EVENT DATE: 20180406
